FAERS Safety Report 7384779-5 (Version None)
Quarter: 2011Q1

REPORT INFORMATION
  Report Type: 
  Country: None (occurrence: None)
  Receive Date: 20110330
  Receipt Date: 20110304
  Transmission Date: 20110831
  Serious: No
  Sender: FDA-Public Use
  Company Number: US-B.I. PHARMACEUTICALS,INC./RIDGEFIELD-2011-BP-04863BP

PATIENT
  Sex: Female

DRUGS (6)
  1. TEKTURNA [Concomitant]
     Indication: HYPERTENSION
     Dosage: 150 MG
     Route: 048
  2. DIOVAN HCT [Concomitant]
     Indication: HYPERTENSION
     Route: 048
  3. NIASPAN [Concomitant]
     Dosage: 500 MG
     Route: 048
  4. NEXIUM [Concomitant]
     Indication: HYPERCHLORHYDRIA
     Route: 048
  5. SOTALOL [Concomitant]
     Indication: HYPERTENSION
     Dosage: 80 MG
     Route: 048
  6. PRADAXA [Suspect]
     Indication: ATRIAL FIBRILLATION
     Dosage: 300 MG
     Route: 048
     Dates: start: 20110111

REACTIONS (4)
  - INITIAL INSOMNIA [None]
  - BLOOD PRESSURE INCREASED [None]
  - FLUSHING [None]
  - PRURITUS [None]
